FAERS Safety Report 10007351 (Version 1)
Quarter: 2014Q1

REPORT INFORMATION
  Report Type: Spontaneous
  Country: FR (occurrence: None)
  Receive Date: 20140311
  Receipt Date: 20140311
  Transmission Date: 20141002
  Serious: Yes (Other)
  Sender: FDA-Public Use
  Company Number: 2014P1001817

PATIENT
  Sex: Male

DRUGS (5)
  1. RIFAMPIN [Suspect]
  2. FLUINDIONE [Suspect]
     Indication: ATRIAL FIBRILLATION
  3. HEPARIN [Concomitant]
  4. CEFAZOLIN [Concomitant]
  5. LEVOFLOXACIN [Concomitant]

REACTIONS (4)
  - International normalised ratio decreased [None]
  - Drug interaction [None]
  - Drug interaction [None]
  - Vitamin K deficiency [None]
